FAERS Safety Report 11095998 (Version 3)
Quarter: 2016Q1

REPORT INFORMATION
  Report Type: Report from Study
  Country: JP (occurrence: JP)
  Receive Date: 20150507
  Receipt Date: 20160218
  Transmission Date: 20160525
  Serious: Yes (Death, Other)
  Sender: FDA-Public Use
  Company Number: JP-ALEXION PHARMACEUTICALS INC.-A201501472

PATIENT
  Age: 1 Year
  Sex: Male
  Weight: 4.5 kg

DRUGS (10)
  1. SOLIRIS [Suspect]
     Active Substance: ECULIZUMAB
     Dosage: 300 MG, EVERY 3 WEEKS
     Route: 042
     Dates: start: 20150212, end: 20150326
  2. TAKEPRON [Concomitant]
     Active Substance: LANSOPRAZOLE
     Indication: GRAFT VERSUS HOST DISEASE
     Dosage: 6.7 MG, QD
     Route: 048
     Dates: start: 20141101, end: 20150313
  3. URSO [Concomitant]
     Active Substance: URSODIOL
     Indication: GRAFT VERSUS HOST DISEASE
     Dosage: 3.40 MG, TID
     Route: 048
     Dates: start: 20141101, end: 20150326
  4. SOLIRIS [Suspect]
     Active Substance: ECULIZUMAB
     Indication: HAEMOLYTIC URAEMIC SYNDROME
     Dosage: 300 MG, QW
     Route: 042
     Dates: start: 20150205, end: 20150205
  5. PREDONINE [Suspect]
     Active Substance: PREDNISOLONE\PREDNISOLONE ACETATE\PREDNISOLONE SODIUM SUCCINATE
     Indication: GRAFT VERSUS HOST DISEASE
     Dosage: 40 MG, QD
     Route: 041
     Dates: start: 20141012, end: 20150402
  6. VICCLOX                            /00587301/ [Concomitant]
     Active Substance: ACYCLOVIR SODIUM
     Indication: INFECTION PROPHYLAXIS
     Dosage: 67.4 MG, TID
     Route: 048
     Dates: start: 20140604, end: 20150224
  7. REVATIO [Concomitant]
     Active Substance: SILDENAFIL CITRATE
     Indication: PULMONARY HYPERTENSION
     Dosage: 2.7 MG, TID
     Route: 048
     Dates: start: 20141005, end: 20150326
  8. BAKTAR [Concomitant]
     Active Substance: SULFAMETHOXAZOLE\TRIMETHOPRIM
     Indication: INFECTION PROPHYLAXIS
     Dosage: 20 MG, BID
     Route: 048
     Dates: start: 20141101, end: 20150322
  9. BERAPROST NA [Concomitant]
     Active Substance: BERAPROST SODIUM
     Indication: PULMONARY HYPERTENSION
     Dosage: 1 ?G, TID
     Route: 048
     Dates: start: 20150115, end: 20150326
  10. CELLCEPT [Concomitant]
     Active Substance: MYCOPHENOLATE MOFETIL\MYCOPHENOLATE MOFETIL HYDROCHLORIDE
     Indication: GRAFT VERSUS HOST DISEASE
     Dosage: 125 MG, BID
     Route: 048
     Dates: start: 20141005, end: 20150326

REACTIONS (1)
  - Pseudomonal sepsis [Fatal]

NARRATIVE: CASE EVENT DATE: 20150402
